FAERS Safety Report 7247585-8 (Version None)
Quarter: 2011Q1

REPORT INFORMATION
  Report Type: 
  Country: None (occurrence: None)
  Receive Date: 20110127
  Receipt Date: 20110112
  Transmission Date: 20110831
  Serious: No
  Sender: FDA-Public Use
  Company Number: JP-ROCHE-755067

PATIENT
  Age: 31 Year
  Sex: Female

DRUGS (1)
  1. TAMIFLU [Suspect]
     Route: 048

REACTIONS (2)
  - ACCIDENTAL OVERDOSE [None]
  - NO ADVERSE EVENT [None]
